FAERS Safety Report 19493246 (Version 1)
Quarter: 2021Q3

REPORT INFORMATION
  Report Type: Spontaneous
  Country: DE (occurrence: DE)
  Receive Date: 20210705
  Receipt Date: 20210705
  Transmission Date: 20211014
  Serious: Yes (Death, Hospitalization)
  Sender: FDA-Public Use
  Company Number: DE-PFIZER INC-2021770557

PATIENT
  Age: 70 Year
  Sex: Female
  Weight: 59 kg

DRUGS (12)
  1. GABAPENTIN. [Suspect]
     Active Substance: GABAPENTIN
     Dosage: UNK
  2. DIHYDRALAZIN [Concomitant]
     Active Substance: DIHYDRALAZINE SULFATE
     Dosage: 25 MG, UP TO 4 TIMES A DAY DEPENDING ON THE RR, TABLETS
     Route: 048
  3. MOXONIDIN [Concomitant]
     Active Substance: MOXONIDINE
     Dosage: 0.3 MG, 1X/DAY, 0.3 MG, 0?0?1?0, TABLET
     Route: 048
  4. CINACALCET. [Concomitant]
     Active Substance: CINACALCET
     Dosage: 30 MG, 30 MG, 4/PER WEEK, TABLET
     Route: 048
  5. ZINC OXIDE. [Concomitant]
     Active Substance: ZINC OXIDE
     Dosage: 2 BIS 3 TIMES DAILY, OINTMENT
     Route: 003
  6. ENOXAPARIN [Concomitant]
     Active Substance: ENOXAPARIN
     Dosage: 6000 IU, 0?0?1?0, SOLUTION FOR INJECTION / INFUSION
     Route: 058
  7. ACICLOVIR [Concomitant]
     Active Substance: ACYCLOVIR
     Route: 048
  8. OMEPRAZOL [Concomitant]
     Active Substance: OMEPRAZOLE
     Dosage: 40 MG, 2X/DAY, 40 MG, 1?0?1?0, CAPSULES
     Route: 048
  9. ACETYLSALICYLIC ACID [Concomitant]
     Active Substance: ASPIRIN
     Dosage: 100 MG, 0?0?1?0, TABLET
     Route: 048
  10. BISOPROLOL [Concomitant]
     Active Substance: BISOPROLOL
     Dosage: 5 MG, 1?0?1?0, TABLET
     Route: 048
  11. SIMVASTATIN. [Concomitant]
     Active Substance: SIMVASTATIN
     Dosage: 40 MG, 1X/DAY, 40 MG, 0?0?1?0, TABLET
     Route: 048
  12. CANDESARTAN. [Concomitant]
     Active Substance: CANDESARTAN
     Dosage: 16 MG, 1X/DAY, 1?0?0?0, TABLET
     Route: 048

REACTIONS (5)
  - Language disorder [Unknown]
  - Herpes zoster [Unknown]
  - Headache [Unknown]
  - Death [Fatal]
  - Dizziness [Unknown]

NARRATIVE: CASE EVENT DATE: 20210324
